FAERS Safety Report 25011843 (Version 3)
Quarter: 2025Q1

REPORT INFORMATION
  Report Type: Spontaneous
  Country: US (occurrence: US)
  Receive Date: 20250226
  Receipt Date: 20250313
  Transmission Date: 20250409
  Serious: Yes (Other)
  Sender: BIOGEN
  Company Number: US-BIOGEN-2025BI01301891

PATIENT
  Sex: Male

DRUGS (2)
  1. TYSABRI [Interacting]
     Active Substance: NATALIZUMAB
     Indication: Multiple sclerosis
     Route: 050
     Dates: start: 20170403, end: 20250108
  2. CALQUENCE [Interacting]
     Active Substance: ACALABRUTINIB
     Indication: Product used for unknown indication
     Route: 050

REACTIONS (3)
  - Chronic lymphocytic leukaemia [Unknown]
  - Drug interaction [Unknown]
  - Drug ineffective [Unknown]
